FAERS Safety Report 19928443 (Version 1)
Quarter: 2021Q4

REPORT INFORMATION
  Report Type: Spontaneous
  Country: US (occurrence: US)
  Receive Date: 20211005
  Receipt Date: 20211005
  Transmission Date: 20220303
  Serious: Yes (Hospitalization)
  Sender: FDA-Public Use
  Company Number: None

PATIENT
  Sex: Male

DRUGS (3)
  1. TREMFYA [Suspect]
     Active Substance: GUSELKUMAB
     Indication: Psoriasis
     Dosage: ?          OTHER FREQUENCY:Q8WKS;
     Route: 058
     Dates: start: 20210602
  2. MYCOPHENOLIC ACID [Concomitant]
     Active Substance: MYCOPHENOLIC ACID
  3. ENVARSUS XR [Concomitant]
     Active Substance: TACROLIMUS

REACTIONS (2)
  - Illness [None]
  - Therapy interrupted [None]
